FAERS Safety Report 7988267-4 (Version None)
Quarter: 2011Q4

REPORT INFORMATION
  Report Type: 
  Country: None (occurrence: None)
  Receive Date: 20111216
  Receipt Date: 20111006
  Transmission Date: 20120403
  Serious: No
  Sender: FDA-Public Use
  Company Number: US-ABBOTT-11P-163-0863077-00

PATIENT
  Sex: Female

DRUGS (2)
  1. ESTRADIOL [Concomitant]
     Indication: PRODUCT USED FOR UNKNOWN INDICATION
  2. PROMETRIUM [Suspect]
     Indication: MENOPAUSAL SYMPTOMS
     Dates: start: 20100101

REACTIONS (10)
  - NIGHT SWEATS [None]
  - MENOPAUSAL SYMPTOMS [None]
  - NIPPLE PAIN [None]
  - MALAISE [None]
  - VOMITING PROJECTILE [None]
  - DEPRESSION [None]
  - HANGOVER [None]
  - INITIAL INSOMNIA [None]
  - MIGRAINE [None]
  - INCORRECT DOSE ADMINISTERED [None]
